FAERS Safety Report 9444778 (Version 1)
Quarter: 2013Q3

REPORT INFORMATION
  Report Type: Spontaneous
  Country: FR (occurrence: FR)
  Receive Date: 20130807
  Receipt Date: 20130807
  Transmission Date: 20140515
  Serious: Yes (Life-Threatening)
  Sender: FDA-Public Use
  Company Number: FR-ROCHE-1257569

PATIENT
  Age: 44 Year
  Sex: Male

DRUGS (4)
  1. VALIUM [Suspect]
     Indication: PRODUCT USED FOR UNKNOWN INDICATION
     Dosage: 10MG IN THE MORNING AND 5MG IN THE EVENING
     Route: 048
  2. BACLOFENE [Suspect]
     Indication: ALCOHOLISM
     Dosage: 5DF IN MORNING AND AT LUNCHTIME, 8DF IN EVENING
     Route: 048
     Dates: end: 20130522
  3. DEROXAT [Concomitant]
     Dosage: IN EVENING
     Route: 065
  4. PROPRANOLOL [Concomitant]

REACTIONS (1)
  - Suicide attempt [Unknown]
